FAERS Safety Report 8988594 (Version 4)
Quarter: 2013Q1

REPORT INFORMATION
  Report Type: Spontaneous
  Country: US (occurrence: US)
  Receive Date: 20121228
  Receipt Date: 20130222
  Transmission Date: 20140127
  Serious: Yes (Death)
  Sender: FDA-Public Use
  Company Number: US-PFIZER INC-2012329885

PATIENT
  Age: 55 Year
  Sex: Female

DRUGS (3)
  1. XANAX [Suspect]
     Dosage: UNK
  2. SOMA [Suspect]
     Dosage: UNK
  3. OXYCONTIN [Suspect]
     Dosage: UNK

REACTIONS (2)
  - Overdose [Fatal]
  - Death [Fatal]
